FAERS Safety Report 21360494 (Version 2)
Quarter: 2022Q3

REPORT INFORMATION
  Report Type: Other
  Country: US (occurrence: None)
  Receive Date: 20220921
  Receipt Date: 20220928
  Transmission Date: 20221027
  Serious: No
  Sender: FDA-Public Use
  Company Number: US-ROCHE-3181944

PATIENT
  Age: 56 Year
  Sex: Male

DRUGS (1)
  1. OCREVUS [Suspect]
     Active Substance: OCRELIZUMAB
     Indication: Multiple sclerosis
     Dosage: ONGOING YES, INITIAL DOSE OF 300MG IV DAY 1 + DAY 15 DATE OF TREATMENT: 09/SEP/2022, 09/MAR/2022, 08
     Route: 042
     Dates: start: 20210324

REACTIONS (2)
  - COVID-19 [Not Recovered/Not Resolved]
  - Malaise [Unknown]

NARRATIVE: CASE EVENT DATE: 20220903
